FAERS Safety Report 22172630 (Version 1)
Quarter: 2023Q2

REPORT INFORMATION
  Report Type: Spontaneous
  Country: SE (occurrence: SE)
  Receive Date: 20230404
  Receipt Date: 20230404
  Transmission Date: 20230721
  Serious: Yes (Other)
  Sender: FDA-Public Use
  Company Number: None

PATIENT
  Age: 2 Month
  Sex: Male

DRUGS (1)
  1. MIRENA [Suspect]
     Active Substance: LEVONORGESTREL
     Indication: Contraception
     Dosage: 20?G/DAY
     Route: 015
     Dates: start: 20211213, end: 20220107

REACTIONS (3)
  - Poor feeding infant [Unknown]
  - Rash [Recovering/Resolving]
  - Exposure via breast milk [Recovering/Resolving]

NARRATIVE: CASE EVENT DATE: 20220103
